FAERS Safety Report 10003620 (Version 3)
Quarter: 2014Q2

REPORT INFORMATION
  Report Type: Spontaneous
  Country: US (occurrence: US)
  Receive Date: 20140312
  Receipt Date: 20140408
  Transmission Date: 20141212
  Serious: Yes (Death)
  Sender: FDA-Public Use
  Company Number: PHEH2014US004964

PATIENT
  Sex: Female
  Weight: 83.9 kg

DRUGS (5)
  1. SOLUMEDROL [Concomitant]
     Indication: MULTIPLE SCLEROSIS
  2. GILENYA [Suspect]
     Indication: MULTIPLE SCLEROSIS
     Dosage: 0.5 MG, QD
     Route: 048
     Dates: start: 20110101
  3. METHOTREXATE [Concomitant]
     Indication: MULTIPLE SCLEROSIS
     Dates: start: 2005
  4. BETASERON [Concomitant]
     Indication: MULTIPLE SCLEROSIS
  5. COPAXONE [Concomitant]
     Indication: MULTIPLE SCLEROSIS

REACTIONS (4)
  - Malnutrition [Fatal]
  - Multiple sclerosis [Fatal]
  - Loss of consciousness [Unknown]
  - Weight decreased [Unknown]
